FAERS Safety Report 11703962 (Version 1)
Quarter: 2015Q4

REPORT INFORMATION
  Report Type: Spontaneous
  Country: US (occurrence: None)
  Receive Date: 20151105
  Receipt Date: 20151105
  Transmission Date: 20160304
  Serious: Yes (Disabling, Other)
  Sender: FDA-Public Use
  Company Number: None

PATIENT
  Age: 57 Year
  Sex: Female
  Weight: 64.86 kg

DRUGS (7)
  1. TOPIRIMATE [Concomitant]
  2. DEXILANT [Concomitant]
     Active Substance: DEXLANSOPRAZOLE
  3. CHLORITZADONE [Concomitant]
  4. IBUPROFEN. [Concomitant]
     Active Substance: IBUPROFEN
  5. CIPRO [Suspect]
     Active Substance: CIPROFLOXACIN HYDROCHLORIDE
     Indication: EAR PAIN
     Dosage: INTO THE EAR
  6. NEURONTIN [Concomitant]
     Active Substance: GABAPENTIN
  7. FLEVERIL [Concomitant]

REACTIONS (5)
  - Feeling abnormal [None]
  - Pain [None]
  - Musculoskeletal pain [None]
  - Toxicity to various agents [None]
  - Muscular weakness [None]
